FAERS Safety Report 4649507-2 (Version None)
Quarter: 2005Q2

REPORT INFORMATION
  Report Type: 
  Country: None (occurrence: None)
  Receive Date: 20050427
  Receipt Date: 20050414
  Transmission Date: 20051028
  Serious: Yes (Other)
  Sender: FDA-Public Use
  Company Number: 2005060898

PATIENT
  Sex: 0

DRUGS (1)
  1. SOMAVERT [Suspect]
     Indication: ILL-DEFINED DISORDER

REACTIONS (3)
  - DEEP VEIN THROMBOSIS [None]
  - PLASTIC SURGERY [None]
  - PULMONARY EMBOLISM [None]
